FAERS Safety Report 6585172-5 (Version None)
Quarter: 2010Q1

REPORT INFORMATION
  Report Type: 
  Country: None (occurrence: None)
  Receive Date: 20100217
  Receipt Date: 20100211
  Transmission Date: 20100710
  Serious: Yes (Other)
  Sender: FDA-Public Use
  Company Number: GB-ROCHE-685235

PATIENT

DRUGS (1)
  1. HERCEPTIN [Suspect]
     Indication: BREAST CANCER
     Dates: start: 20070601, end: 20071001

REACTIONS (5)
  - CHEMOTHERAPY CARDIOTOXICITY ATTENUATION [None]
  - DRUG EXPOSURE DURING PREGNANCY [None]
  - EJECTION FRACTION DECREASED [None]
  - PREGNANCY [None]
  - PREMATURE LABOUR [None]
